FAERS Safety Report 10287238 (Version 1)
Quarter: 2014Q3

REPORT INFORMATION
  Report Type: Report from Study
  Country: AU (occurrence: None)
  Receive Date: 20140707
  Receipt Date: 20140707
  Transmission Date: 20150326
  Serious: Yes (Hospitalization)
  Sender: FDA-Public Use
  Company Number: 2014-19890

PATIENT
  Sex: Female

DRUGS (7)
  1. EYLEA [Suspect]
     Active Substance: AFLIBERCEPT
     Indication: AGE-RELATED MACULAR DEGENERATION
     Dosage: EVERY 8 WK
  2. EFEXOR (VENLAFAXINE HYDROCHLORIDE) [Concomitant]
  3. TENSIG (ATENOLOL) [Concomitant]
  4. TENOLOL (ATENOLOL) [Concomitant]
  5. PANADOL (PARACETAMOL) [Concomitant]
     Active Substance: ACETAMINOPHEN
  6. VITAMIN D (ERGOCALCIFEROL) [Concomitant]
     Active Substance: ERGOCALCIFEROL
  7. ISOPTIN (VERAPAMIL HYDROCHLORIDE) [Concomitant]

REACTIONS (1)
  - Blood pressure increased [None]
